FAERS Safety Report 16012934 (Version 3)
Quarter: 2020Q4

REPORT INFORMATION
  Report Type: Spontaneous
  Country: US (occurrence: US)
  Receive Date: 20190227
  Receipt Date: 20201208
  Transmission Date: 20210113
  Serious: Yes (Hospitalization, Other)
  Sender: FDA-Public Use
  Company Number: US-PFIZER INC-2019083154

PATIENT
  Age: 51 Year
  Sex: Female
  Weight: 54.43 kg

DRUGS (7)
  1. ALTACE [Concomitant]
     Active Substance: RAMIPRIL
     Indication: HYPERTENSION
     Dosage: 5 MG, 1X/DAY
  2. PLAVIX [Concomitant]
     Active Substance: CLOPIDOGREL BISULFATE
     Dosage: UNK
  3. TOPROL XL [Concomitant]
     Active Substance: METOPROLOL SUCCINATE
     Indication: HYPERTENSION
     Dosage: 50 MG, DAILY
  4. LIPITOR [Concomitant]
     Active Substance: ATORVASTATIN CALCIUM
     Dosage: 40 MG, DAILY
  5. EZETIMIBE. [Suspect]
     Active Substance: EZETIMIBE
     Indication: BLOOD CHOLESTEROL INCREASED
     Dosage: 10 MG, 1X/DAY
     Route: 048
     Dates: start: 201812
  6. ATORVASTATIN CALCIUM. [Suspect]
     Active Substance: ATORVASTATIN CALCIUM
     Indication: BLOOD CHOLESTEROL INCREASED
     Dosage: 40 MG, 1X/DAY
     Route: 048
  7. ZETIA [Concomitant]
     Active Substance: EZETIMIBE
     Indication: BLOOD CHOLESTEROL INCREASED
     Dosage: 10 MG, 1X/DAY

REACTIONS (15)
  - Coronary artery occlusion [Recovered/Resolved]
  - Pain in extremity [Not Recovered/Not Resolved]
  - Loss of consciousness [Unknown]
  - Pyrexia [Recovered/Resolved]
  - Blood pressure decreased [Unknown]
  - Muscle spasms [Unknown]
  - Back pain [Unknown]
  - Fall [Recovered/Resolved with Sequelae]
  - Drug hypersensitivity [Unknown]
  - Myalgia [Not Recovered/Not Resolved]
  - Upper limb fracture [Recovered/Resolved with Sequelae]
  - Drug intolerance [Unknown]
  - Blood pressure increased [Not Recovered/Not Resolved]
  - Muscle disorder [Unknown]
  - Muscle twitching [Unknown]

NARRATIVE: CASE EVENT DATE: 2002
